FAERS Safety Report 5829659-9 (Version None)
Quarter: 2008Q3

REPORT INFORMATION
  Report Type: 
  Country: None (occurrence: None)
  Receive Date: 20080729
  Receipt Date: 20080716
  Transmission Date: 20090109
  Serious: Yes (Congenital Anomaly)
  Sender: FDA-Public Use
  Company Number: 2008AL008800

PATIENT

DRUGS (3)
  1. CITALOPRAM HYDROBROMIDE [Suspect]
     Indication: ANXIETY
     Dosage: 40 MG; TRPL
     Route: 064
     Dates: start: 20070124, end: 20080423
  2. PROPRANOLOL HYDROCHLORIDE [Suspect]
     Indication: ANXIETY
     Dosage: 10 MG; TID; TRPL
     Route: 064
     Dates: start: 20070828
  3. DICLOFENAC SODIUM [Concomitant]

REACTIONS (3)
  - ABORTION INDUCED [None]
  - ANENCEPHALY [None]
  - MATERNAL DRUGS AFFECTING FOETUS [None]
